FAERS Safety Report 18577002 (Version 2)
Quarter: 2020Q4

REPORT INFORMATION
  Report Type: Spontaneous
  Country: US (occurrence: US)
  Receive Date: 20201204
  Receipt Date: 20201207
  Transmission Date: 20210114
  Serious: Yes (Death, Hospitalization)
  Sender: FDA-Public Use
  Company Number: US-UCBSA-2020048273

PATIENT
  Age: 78 Year
  Sex: Male
  Weight: 72.57 kg

DRUGS (1)
  1. VIMPAT [Suspect]
     Active Substance: LACOSAMIDE
     Indication: SEIZURE
     Dosage: 150 MILLIGRAM, 2X/DAY (BID)
     Route: 048
     Dates: start: 202004, end: 20201113

REACTIONS (2)
  - Pneumonia [Fatal]
  - End stage renal disease [Fatal]

NARRATIVE: CASE EVENT DATE: 202010
